FAERS Safety Report 13503178 (Version 1)
Quarter: 2017Q2

REPORT INFORMATION
  Report Type: Spontaneous
  Country: US (occurrence: US)
  Receive Date: 20170502
  Receipt Date: 20170502
  Transmission Date: 20170830
  Serious: No
  Sender: FDA-Public Use
  Company Number: US-PFIZER INC-2017185996

PATIENT
  Age: 2 Year
  Sex: Male

DRUGS (16)
  1. LEVOTHROID [Concomitant]
     Active Substance: LEVOTHYROXINE SODIUM
     Dosage: UNK UNK, DAILY (0.5 TABLETS)
     Route: 048
     Dates: start: 20160525
  2. SYNTHROID [Concomitant]
     Active Substance: LEVOTHYROXINE SODIUM
     Indication: HYPOTHYROIDISM
     Dosage: UNK UNK, DAILY (0.5 TABLETS)
     Route: 048
     Dates: start: 20160525
  3. PREVACID [Concomitant]
     Active Substance: LANSOPRAZOLE
     Dosage: UNK, (LIQUID)
     Route: 048
  4. NOVAREL [Concomitant]
     Active Substance: CHORIOGONADOTROPIN ALFA
     Dosage: 500 IU, 2X/WEEK
     Route: 030
     Dates: start: 20170227
  5. GENOTROPIN MQ [Suspect]
     Active Substance: SOMATROPIN
     Indication: PRADER-WILLI SYNDROME
     Dosage: 0.4 MG, DAILY
     Route: 058
     Dates: start: 201507
  6. GENOTROPIN MQ [Suspect]
     Active Substance: SOMATROPIN
     Dosage: 0.4 MG, 1X/DAY, (EVERY NIGHT AT BEDTIME)
     Route: 058
     Dates: start: 20170224
  7. FOLNASE [Concomitant]
     Dosage: UNK, DAILY (50 MCG/ACT), (SPRAY 1 SPRAY IN EACH NOSTRIL)
     Route: 045
  8. CARNITOR [Concomitant]
     Active Substance: LEVOCARNITINE
     Dosage: 5.5ML, DAILY
     Route: 048
     Dates: start: 20161108
  9. PREGNYL [Concomitant]
     Active Substance: CHORIOGONADOTROPIN ALFA
     Dosage: 500 IU, 2X/WEEK
     Route: 030
     Dates: start: 20170227
  10. VITAMIN B12 [Concomitant]
     Active Substance: CYANOCOBALAMIN
     Dosage: 500 UG, DAILY
     Route: 048
  11. AXID [Concomitant]
     Active Substance: NIZATIDINE
     Dosage: UNK
     Route: 048
  12. GENOTROPIN MQ [Suspect]
     Active Substance: SOMATROPIN
     Dosage: 0.6 MG, DAILY
     Route: 058
  13. COENZYME Q10 [Concomitant]
     Active Substance: UBIDECARENONE
     Dosage: 50 MG, DAILY
     Route: 048
     Dates: start: 20160503
  14. MIRALAX [Concomitant]
     Active Substance: POLYETHYLENE GLYCOL 3350
     Dosage: UNK UNK, DAILY
  15. VITAMIN B12 [Concomitant]
     Active Substance: CYANOCOBALAMIN
     Dosage: 0.5 ML, UNK (EVERY 2 WEEKS)
     Route: 058
     Dates: start: 20170226
  16. MULTIVITAMINES WITH IRON [Concomitant]
     Dosage: 0.4 ML, UNK
     Route: 048

REACTIONS (1)
  - Drug ineffective [Unknown]
